FAERS Safety Report 4626898-X (Version None)
Quarter: 2005Q2

REPORT INFORMATION
  Report Type: 
  Country: None (occurrence: None)
  Receive Date: 20050401
  Receipt Date: 20050401
  Transmission Date: 20051028
  Serious: Yes (Death)
  Sender: FDA-Public Use
  Company Number: None

PATIENT
  Age: 43 Year
  Sex: Male
  Weight: 89.3586 kg

DRUGS (2)
  1. ADDERALL 20 [Suspect]
     Indication: ATTENTION DEFICIT/HYPERACTIVITY DISORDER
     Dosage: 10 MG PO QD
     Route: 048
     Dates: start: 20031216
  2. EFFEXOR [Suspect]
     Indication: ANXIETY
     Dosage: 75 MG PO QD
     Route: 048
     Dates: start: 20040311

REACTIONS (1)
  - SUBARACHNOID HAEMORRHAGE [None]
